FAERS Safety Report 23988140 (Version 3)
Quarter: 2024Q3

REPORT INFORMATION
  Report Type: Report from Study
  Country: US (occurrence: US)
  Receive Date: 20240619
  Receipt Date: 20240715
  Transmission Date: 20241016
  Serious: No
  Sender: SANDOZ
  Company Number: US-SANDOZ-SDZ2024US058579

PATIENT
  Age: 56 Year
  Sex: Female

DRUGS (1)
  1. HYRIMOZ [Suspect]
     Active Substance: ADALIMUMAB-ADAZ
     Indication: Product used for unknown indication
     Dosage: UNK
     Route: 058
     Dates: start: 20240614

REACTIONS (3)
  - Application site haemorrhage [Unknown]
  - Influenza like illness [Unknown]
  - Device information output issue [Unknown]

NARRATIVE: CASE EVENT DATE: 20240614
